FAERS Safety Report 4401124-5 (Version None)
Quarter: 2004Q3

REPORT INFORMATION
  Report Type: 
  Country: None (occurrence: None)
  Receive Date: 20040907
  Receipt Date: 20031107
  Transmission Date: 20050211
  Serious: No
  Sender: FDA-Public Use
  Company Number: US-BRISTOL-MYERS SQUIBB COMPANY-12431243

PATIENT
  Sex: Female

DRUGS (1)
  1. COUMADIN [Suspect]
     Route: 048
     Dates: start: 20030601

REACTIONS (3)
  - DYSPNOEA [None]
  - RASH SCALY [None]
  - SKIN DISCOLOURATION [None]
